FAERS Safety Report 22238589 (Version 1)
Quarter: 2023Q2

REPORT INFORMATION
  Report Type: Spontaneous
  Country: CN (occurrence: CN)
  Receive Date: 20230421
  Receipt Date: 20230421
  Transmission Date: 20230722
  Serious: Yes (Life-Threatening, Hospitalization, Disabling, Other)
  Sender: FDA-Public Use
  Company Number: CN-BAYER-2023A051325

PATIENT
  Age: 62 Year
  Sex: Male
  Weight: 83.2 kg

DRUGS (1)
  1. ULTRAVIST [Suspect]
     Active Substance: IOPROMIDE
     Indication: Computerised tomogram abdomen
     Dosage: 72 ML, ONCE, 2.6ML/S HIGH PRESSURE INJECTION
     Route: 042
     Dates: start: 20230414, end: 20230414

REACTIONS (17)
  - Anaphylactic shock [Recovering/Resolving]
  - Anaphylactic reaction [Recovering/Resolving]
  - Coma [None]
  - Loss of consciousness [None]
  - Unresponsive to stimuli [None]
  - Acute myocardial infarction [None]
  - Cerebral infarction [None]
  - Blood pressure increased [Recovered/Resolved]
  - Heart rate decreased [None]
  - Blood pressure systolic decreased [None]
  - Oxygen saturation decreased [None]
  - Ventricular tachycardia [None]
  - Thrombosis [None]
  - Ocular hyperaemia [None]
  - Cold sweat [None]
  - Restlessness [None]
  - Defect conduction intraventricular [None]

NARRATIVE: CASE EVENT DATE: 20230414
